FAERS Safety Report 5504907-3 (Version None)
Quarter: 2007Q4

REPORT INFORMATION
  Report Type: 
  Country: None (occurrence: None)
  Receive Date: 20071102
  Receipt Date: 20071031
  Transmission Date: 20080405
  Serious: Yes (Death)
  Sender: FDA-Public Use
  Company Number: PHBS2007GR14009

PATIENT
  Age: 34 Year
  Sex: Male
  Weight: 120 kg

DRUGS (4)
  1. MUSCORIL [Concomitant]
  2. FORTATHRIN - SLOW RELEASE [Concomitant]
  3. ZANTAC [Concomitant]
  4. VOLTAREN [Suspect]
     Indication: BACK PAIN

REACTIONS (1)
  - PULMONARY EMBOLISM [None]
